FAERS Safety Report 24779314 (Version 1)
Quarter: 2024Q4

REPORT INFORMATION
  Report Type: Spontaneous
  Country: US (occurrence: US)
  Receive Date: 20241226
  Receipt Date: 20241226
  Transmission Date: 20250115
  Serious: No
  Sender: Haleon PLC
  Company Number: US-HALEON-2217331

PATIENT
  Sex: Female

DRUGS (4)
  1. THERAFLU SEVERE COLD RELIEF SOFT CHEWS [Suspect]
     Active Substance: ACETAMINOPHEN\DEXTROMETHORPHAN HYDROBROMIDE
     Indication: Nasopharyngitis
  2. THERAFLU SEVERE COLD RELIEF SOFT CHEWS [Suspect]
     Active Substance: ACETAMINOPHEN\DEXTROMETHORPHAN HYDROBROMIDE
     Indication: Rhinorrhoea
  3. THERAFLU SEVERE COLD RELIEF SOFT CHEWS [Suspect]
     Active Substance: ACETAMINOPHEN\DEXTROMETHORPHAN HYDROBROMIDE
     Indication: Oropharyngeal pain
  4. THERAFLU SEVERE COLD RELIEF SOFT CHEWS [Suspect]
     Active Substance: ACETAMINOPHEN\DEXTROMETHORPHAN HYDROBROMIDE
     Indication: Cough

REACTIONS (1)
  - Hypoaesthesia oral [Unknown]
